FAERS Safety Report 8496332 (Version 4)
Quarter: 2013Q1

REPORT INFORMATION
  Report Type: Spontaneous
  Country: ES (occurrence: ES)
  Receive Date: 20120405
  Receipt Date: 20130309
  Transmission Date: 20140127
  Serious: Yes (Other)
  Sender: FDA-Public Use
  Company Number: ES-ABBOTT-12P-144-0920933-00

PATIENT
  Age: 37 Year
  Sex: Male
  Weight: 89.6 kg

DRUGS (11)
  1. DEPAKINE [Suspect]
     Indication: PRODUCT USED FOR UNKNOWN INDICATION
     Route: 048
     Dates: start: 20101221
  2. RISPERIDONE [Interacting]
     Indication: BIPOLAR I DISORDER
     Route: 048
     Dates: start: 20101221, end: 20110214
  3. RISPERIDONE [Interacting]
     Route: 048
     Dates: start: 20110214, end: 20110401
  4. RISPERIDONE [Interacting]
     Route: 048
     Dates: start: 20110401, end: 201106
  5. MIRTAZAPINE [Interacting]
     Indication: DEPRESSION
     Route: 048
     Dates: start: 20110126, end: 20110225
  6. MIRTAZAPINE [Interacting]
     Route: 048
     Dates: start: 20110225, end: 20110305
  7. VENLAFAXINE [Interacting]
     Indication: DEPRESSION
     Route: 048
     Dates: start: 20110214, end: 20110225
  8. VENLAFAXINE [Interacting]
     Dates: start: 20110225, end: 20110401
  9. ANTIDEPRESSANTS [Suspect]
     Indication: DEPRESSION
     Route: 048
     Dates: start: 20110305, end: 20110426
  10. LORMETAZEPAM [Interacting]
     Indication: INSOMNIA
     Route: 048
     Dates: start: 20101221
  11. VENLAFAXINE HYDROCHLORIDE [Concomitant]
     Indication: PRODUCT USED FOR UNKNOWN INDICATION
     Dates: start: 20110401

REACTIONS (2)
  - Drug interaction [Not Recovered/Not Resolved]
  - Abnormal weight gain [Not Recovered/Not Resolved]
